FAERS Safety Report 19603076 (Version 1)
Quarter: 2021Q3

REPORT INFORMATION
  Report Type: Spontaneous
  Country: US (occurrence: US)
  Receive Date: 20210723
  Receipt Date: 20210723
  Transmission Date: 20211014
  Serious: Yes (Hospitalization, Other)
  Sender: FDA-Public Use
  Company Number: US-SA-2021SA241257

PATIENT
  Sex: Female

DRUGS (4)
  1. CRANBERRY [VACCINIUM MACROCARPON FRUIT] [Concomitant]
     Active Substance: CRANBERRY
  2. AUBAGIO [Suspect]
     Active Substance: TERIFLUNOMIDE
     Indication: MULTIPLE SCLEROSIS
     Route: 048
  3. PROBIOTICS NOS [Concomitant]
     Active Substance: PROBIOTICS NOS
  4. CENTRUM [MINERALS NOS;VITAMINS NOS] [Concomitant]
     Active Substance: MINERALS\VITAMINS

REACTIONS (7)
  - Urticaria [Unknown]
  - Abdominal pain upper [Unknown]
  - Multiple sclerosis relapse [Unknown]
  - Confusional state [Unknown]
  - Flushing [Unknown]
  - Hypoaesthesia [Unknown]
  - Nausea [Unknown]
